FAERS Safety Report 15562225 (Version 1)
Quarter: 2018Q4

REPORT INFORMATION
  Report Type: Spontaneous
  Country: US (occurrence: US)
  Receive Date: 20181024
  Receipt Date: 20181024
  Transmission Date: 20190205
  Serious: No
  Sender: FDA-Public Use
  Company Number: None

PATIENT
  Age: 76 Year
  Sex: Male
  Weight: 93.26 kg

DRUGS (2)
  1. APIXABAN [Suspect]
     Active Substance: APIXABAN
     Indication: MITRAL VALVE REPLACEMENT
     Route: 048
     Dates: start: 20161213, end: 20161227
  2. APIXABAN [Suspect]
     Active Substance: APIXABAN
     Indication: ATRIAL FIBRILLATION
     Route: 048
     Dates: start: 20161213, end: 20161227

REACTIONS (9)
  - Rash [None]
  - Throat tightness [None]
  - Gastric haemorrhage [None]
  - Cough [None]
  - Urticaria [None]
  - Discomfort [None]
  - Pruritus [None]
  - Wheezing [None]
  - Haematochezia [None]

NARRATIVE: CASE EVENT DATE: 20161220
